FAERS Safety Report 16811249 (Version 1)
Quarter: 2019Q3

REPORT INFORMATION
  Report Type: Spontaneous
  Country: US (occurrence: US)
  Receive Date: 20190916
  Receipt Date: 20190916
  Transmission Date: 20191005
  Serious: No
  Sender: FDA-Public Use
  Company Number: US-GILEAD-2019-0428272

PATIENT
  Age: 65 Year
  Sex: Female
  Weight: 50.34 kg

DRUGS (1)
  1. HARVONI [Suspect]
     Active Substance: LEDIPASVIR\SOFOSBUVIR
     Indication: HEPATITIS C
     Dosage: 1 DOSAGE FORM, QD, AT 5:30 AM
     Route: 065

REACTIONS (7)
  - Dysphonia [Unknown]
  - Diarrhoea [Unknown]
  - Liver disorder [Unknown]
  - Weight decreased [Unknown]
  - Product physical issue [Unknown]
  - Malaise [Unknown]
  - Vasodilatation [Unknown]

NARRATIVE: CASE EVENT DATE: 20190824
